FAERS Safety Report 18412058 (Version 3)
Quarter: 2020Q4

REPORT INFORMATION
  Report Type: Spontaneous
  Country: CA (occurrence: CA)
  Receive Date: 20201021
  Receipt Date: 20201102
  Transmission Date: 20210114
  Serious: Yes (Other)
  Sender: FDA-Public Use
  Company Number: CA-JNJFOC-20201026782

PATIENT
  Age: 48 Year
  Sex: Female
  Weight: 63 kg

DRUGS (8)
  1. MESALAZINE [Concomitant]
     Active Substance: MESALAMINE
  2. IRON [Concomitant]
     Active Substance: IRON
  3. PANTOPRAZOLE [Concomitant]
     Active Substance: PANTOPRAZOLE
  4. ERGOCALCIFEROL. [Concomitant]
     Active Substance: ERGOCALCIFEROL
  5. PREDNISONE. [Concomitant]
     Active Substance: PREDNISONE
  6. INFLIXIMAB, RECOMBINANT [Suspect]
     Active Substance: INFLIXIMAB
     Indication: COLITIS ULCERATIVE
     Route: 042
  7. CALCIUM [Concomitant]
     Active Substance: CALCIUM
  8. MESALAMINE. [Concomitant]
     Active Substance: MESALAMINE
     Route: 048

REACTIONS (9)
  - Respiratory rate increased [Unknown]
  - Complication associated with device [Unknown]
  - Inappropriate schedule of product administration [Unknown]
  - Weight increased [Unknown]
  - Product container issue [Unknown]
  - Product dose omission issue [Unknown]
  - Body temperature decreased [Unknown]
  - Off label use [Unknown]
  - Drug level decreased [Unknown]
